FAERS Safety Report 20034927 (Version 1)
Quarter: 2021Q4

REPORT INFORMATION
  Report Type: Spontaneous
  Country: None (occurrence: US)
  Receive Date: 20211104
  Receipt Date: 20211104
  Transmission Date: 20220303
  Serious: Yes (Hospitalization)
  Sender: FDA-Public Use
  Company Number: US-Xttrium Laboratories, Inc-2121482

PATIENT
  Age: 82 Year
  Sex: Female

DRUGS (1)
  1. CHLORHEXIDINE GLUCONATE [Suspect]
     Active Substance: CHLORHEXIDINE GLUCONATE
     Indication: Mouth ulceration
     Route: 048
     Dates: start: 20210818

REACTIONS (2)
  - Taste disorder [Not Recovered/Not Resolved]
  - Dehydration [Recovered/Resolved]
